FAERS Safety Report 11844250 (Version 1)
Quarter: 2015Q4

REPORT INFORMATION
  Report Type: Spontaneous
  Country: CA (occurrence: CA)
  Receive Date: 20151217
  Receipt Date: 20151217
  Transmission Date: 20160305
  Serious: Yes (Other)
  Sender: FDA-Public Use
  Company Number: CA-ROCHE-1677976

PATIENT
  Age: 40 Year
  Sex: Female

DRUGS (6)
  1. XOLAIR [Suspect]
     Active Substance: OMALIZUMAB
     Indication: ASTHMA
     Route: 058
     Dates: start: 20150420
  2. ESOMEPRAZOLE MAGNESIUM. [Concomitant]
     Active Substance: ESOMEPRAZOLE MAGNESIUM
  3. XOLAIR [Suspect]
     Active Substance: OMALIZUMAB
     Route: 058
     Dates: start: 20150506
  4. XOLAIR [Suspect]
     Active Substance: OMALIZUMAB
     Route: 058
     Dates: start: 20150717
  5. SPIRIVA [Concomitant]
     Active Substance: TIOTROPIUM BROMIDE MONOHYDRATE
  6. SYMBICORT [Concomitant]
     Active Substance: BUDESONIDE\FORMOTEROL FUMARATE DIHYDRATE

REACTIONS (16)
  - Smear cervix abnormal [Not Recovered/Not Resolved]
  - Lung disorder [Unknown]
  - Seasonal allergy [Recovered/Resolved]
  - Salivary duct obstruction [Unknown]
  - Asthma [Unknown]
  - Dyspnoea [Unknown]
  - Salivary gland mass [Unknown]
  - Dysphagia [Recovering/Resolving]
  - Erythema [Recovered/Resolved]
  - Respiratory disorder [Unknown]
  - Pruritus [Recovered/Resolved]
  - Dyspepsia [Unknown]
  - Paraesthesia [Recovering/Resolving]
  - Chest discomfort [Recovering/Resolving]
  - Head discomfort [Recovered/Resolved]
  - Dry throat [Recovering/Resolving]

NARRATIVE: CASE EVENT DATE: 20150420
